FAERS Safety Report 9799325 (Version 2)
Quarter: 2014Q1

REPORT INFORMATION
  Report Type: Spontaneous
  Country: DE (occurrence: DE)
  Receive Date: 20140106
  Receipt Date: 20140117
  Transmission Date: 20141002
  Serious: Yes (Other)
  Sender: FDA-Public Use
  Company Number: DE-OTSUKA-US-2014-10008

PATIENT
  Sex: 0

DRUGS (12)
  1. BUSULFEX [Suspect]
     Indication: STEM CELL TRANSPLANT
     Dosage: 0.8 MG/KG, BID ON DAY -6
     Route: 042
  2. BUSULFEX [Suspect]
     Dosage: 0.8 MG/KG, QID ON DAY -5 TO -4
     Route: 042
  3. BUSULFEX [Suspect]
     Dosage: 0.8 MG/KG, QD ON DAY -6
     Route: 042
  4. BUSULFEX [Suspect]
     Dosage: 0.8 MG/KG, QID ON DAY -5
     Route: 042
  5. BUSULFEX [Suspect]
     Dosage: 0.8 MG/KG, TID ON DAY -4
     Route: 042
  6. FLUDARABINE [Suspect]
     Indication: ACUTE MYELOID LEUKAEMIA
     Dosage: 30 MG/M2,ON DAYS -12 TO -9 AS SALVAGE THERAPY
  7. FLUDARABINE [Suspect]
     Indication: STEM CELL TRANSPLANT
     Dosage: 30 MG/M2,ON DAYS -5 TO -4 AS RIC
  8. CYCLOPHOSPHAMIDE [Suspect]
     Indication: STEM CELL TRANSPLANT
     Dosage: 60 MG/KG, ON DAYS -4 TO -3
  9. CYCLOPHOSPHAMIDE [Suspect]
     Dosage: 60 MG/KG FOR MISMATCHED AND UNRELATED DONORS ON DAYS -3 TO -2
  10. CYCLOPHOSPHAMIDE [Suspect]
     Dosage: 40 MG/KG FOR MRD ON DAYS -3 TO -2
  11. CYTARABINE [Suspect]
     Dosage: 2000 MG/M2, ON DAYS -12 TO -9
  12. AMSACRINE [Suspect]
     Indication: ACUTE MYELOID LEUKAEMIA
     Dosage: 100 MG/M2 ON DAYS -12 TO -9

REACTIONS (7)
  - Gastrointestinal toxicity [Unknown]
  - Mucosal inflammation [Unknown]
  - Hepatotoxicity [Unknown]
  - Nephropathy toxic [Unknown]
  - Pulmonary toxicity [Unknown]
  - Cardiotoxicity [Unknown]
  - Neurotoxicity [Unknown]
